FAERS Safety Report 9319460 (Version 7)
Quarter: 2015Q1

REPORT INFORMATION
  Report Type: Spontaneous
  Country: US (occurrence: US)
  Receive Date: 20130530
  Receipt Date: 20150323
  Transmission Date: 20150721
  Serious: Yes (Death, Hospitalization, Other)
  Sender: FDA-Public Use
  Company Number: US-GLAXOSMITHKLINE-A0984805A

PATIENT
  Age: 50 Year
  Sex: Female

DRUGS (6)
  1. FLOLAN [Suspect]
     Active Substance: EPOPROSTENOL SODIUM
     Dosage: 46 NG/KG/MIN (CONCENTRATION 45,000 NG/ML, PUMP RATE 73 ML/DAY,VIAL STRENGTH 1.5 MG),CO
     Route: 042
  2. FLOLAN [Suspect]
     Active Substance: EPOPROSTENOL SODIUM
     Indication: PULMONARY ARTERIAL HYPERTENSION
     Dosage: UNK
     Dates: start: 20010710
  3. FLOLAN [Suspect]
     Active Substance: EPOPROSTENOL SODIUM
     Dosage: UNK
     Dates: start: 20010710
  4. FLOLAN [Suspect]
     Active Substance: EPOPROSTENOL SODIUM
     Indication: PULMONARY ARTERIAL HYPERTENSION
     Dosage: 45.5 NG/KG/MIN, 45,000 NG/ML, 74 ML/DAY, 1.5 MG VIAL STRENGTH
     Route: 042
     Dates: start: 20010710
  5. FLOLAN [Suspect]
     Active Substance: EPOPROSTENOL SODIUM
     Dosage: 45 NG/KG/MIN (CONCENTRATION 45,000 NG/ML, PUMP RATE 73 ML/DAY,VIAL STRENGTH 1.5 MG),CO
     Route: 042
  6. LETAIRIS [Concomitant]
     Active Substance: AMBRISENTAN

REACTIONS (7)
  - Death [Fatal]
  - Dyspnoea [Recovering/Resolving]
  - Pneumothorax [Unknown]
  - Oxygen saturation abnormal [Unknown]
  - Medical observation [Unknown]
  - Pulmonary arterial hypertension [Unknown]
  - Hospitalisation [Unknown]

NARRATIVE: CASE EVENT DATE: 20150201
